FAERS Safety Report 19647125 (Version 2)
Quarter: 2021Q3

REPORT INFORMATION
  Report Type: Spontaneous
  Country: CN (occurrence: CN)
  Receive Date: 20210802
  Receipt Date: 20210914
  Transmission Date: 20211014
  Serious: Yes (Other)
  Sender: FDA-Public Use
  Company Number: CN-ROCHE-2879664

PATIENT
  Age: 42 Year
  Sex: Male

DRUGS (10)
  1. AVASTIN [Suspect]
     Active Substance: BEVACIZUMAB
     Indication: LUNG ADENOCARCINOMA
     Dosage: AT 500 MG/600 MG FOR FIVE CYCLES
     Route: 065
     Dates: start: 20191116, end: 20210322
  2. AVASTIN [Suspect]
     Active Substance: BEVACIZUMAB
     Dosage: FOR 4 CYCLES
     Route: 065
     Dates: start: 20201223
  3. PEMETREXED. [Concomitant]
     Active Substance: PEMETREXED
     Indication: LUNG ADENOCARCINOMA
     Dosage: FOR FIVE CYCLES
     Dates: start: 20191116, end: 20210322
  4. DOCETAXEL. [Concomitant]
     Active Substance: DOCETAXEL
     Indication: LUNG ADENOCARCINOMA
     Dosage: FOR 1 CYCLE
  5. AVASTIN [Suspect]
     Active Substance: BEVACIZUMAB
     Dosage: FOR 1 CYCLE
     Route: 065
  6. PEMETREXED. [Concomitant]
     Active Substance: PEMETREXED
     Dosage: ON 29 JUN 2020, 04 AUG 2020 AND 22 SEP 2020, FOR 3 CYCLES
     Dates: start: 20200629
  7. PEMETREXED. [Concomitant]
     Active Substance: PEMETREXED
     Dosage: FOR 4 CYCLES
     Dates: start: 20201223
  8. ZOLEDRONIC [Concomitant]
     Active Substance: ZOLEDRONIC ACID
  9. AVASTIN [Suspect]
     Active Substance: BEVACIZUMAB
     Dosage: ON 29 JUN 2020, 04 AUG 2020 AND 22 SEP 2020, FOR 3 CYCLES
     Route: 065
     Dates: start: 20200629
  10. CARBOPLATIN. [Concomitant]
     Active Substance: CARBOPLATIN
     Indication: LUNG ADENOCARCINOMA
     Dosage: ON DAY 1 FOR FIVE CYCLES
     Dates: start: 20191116, end: 20210322

REACTIONS (3)
  - Pleural effusion [Unknown]
  - Asthenia [Unknown]
  - Myelosuppression [Unknown]
